FAERS Safety Report 17750521 (Version 1)
Quarter: 2020Q2

REPORT INFORMATION
  Report Type: Spontaneous
  Country: US (occurrence: US)
  Receive Date: 20200505
  Receipt Date: 20200505
  Transmission Date: 20200714
  Serious: Yes (Death)
  Sender: FDA-Public Use
  Company Number: None

PATIENT
  Age: 78 Year
  Sex: Male

DRUGS (1)
  1. CYANOCOBALAMIN 1000 MCG/1ML MDV [Suspect]
     Active Substance: CYANOCOBALAMIN
     Indication: NERVOUS SYSTEM DISORDER
     Route: 030
     Dates: start: 20200224

REACTIONS (1)
  - Death [None]

NARRATIVE: CASE EVENT DATE: 20200505
